FAERS Safety Report 13342425 (Version 1)
Quarter: 2017Q1

REPORT INFORMATION
  Report Type: Other
  Country: US (occurrence: US)
  Receive Date: 20170316
  Receipt Date: 20170316
  Transmission Date: 20170428
  Serious: Yes (Hospitalization, Other)
  Sender: FDA-Public Use
  Company Number: US-ACORDA-ACO_134584_2017

PATIENT
  Age: 64 Year
  Sex: Female

DRUGS (1)
  1. AMPYRA [Suspect]
     Active Substance: DALFAMPRIDINE
     Indication: MULTIPLE SCLEROSIS
     Dosage: 10 MG, BID
     Route: 048
     Dates: start: 20160112

REACTIONS (9)
  - Gallbladder enlargement [Recovered/Resolved]
  - Transfusion [Unknown]
  - Urinary tract infection [Unknown]
  - Lymphoma [Not Recovered/Not Resolved]
  - Pain [Unknown]
  - Blood count abnormal [Unknown]
  - Anaemia [Recovered/Resolved]
  - Cholecystectomy [Unknown]
  - Splenomegaly [Unknown]

NARRATIVE: CASE EVENT DATE: 201612
